FAERS Safety Report 24762068 (Version 1)
Quarter: 2024Q4

REPORT INFORMATION
  Report Type: Report from Study
  Country: GB (occurrence: GB)
  Receive Date: 20241221
  Receipt Date: 20241221
  Transmission Date: 20250115
  Serious: Yes (Other)
  Sender: ABBVIE
  Company Number: GB-ABBVIE-6054648

PATIENT
  Age: 55 Year
  Sex: Male

DRUGS (1)
  1. RINVOQ [Suspect]
     Active Substance: UPADACITINIB
     Indication: Product used for unknown indication
     Route: 048
     Dates: start: 20210706

REACTIONS (10)
  - Suicidal ideation [Recovered/Resolved]
  - Dry eye [Recovered/Resolved]
  - Anxiety [Recovered/Resolved]
  - Tinnitus [Unknown]
  - Fatigue [Recovered/Resolved]
  - Nerve compression [Recovered/Resolved]
  - Root canal infection [Recovered/Resolved]
  - Tendon rupture [Recovered/Resolved]
  - Hordeolum [Recovered/Resolved]
  - Neuralgia [Recovered/Resolved]

NARRATIVE: CASE EVENT DATE: 20221024
